FAERS Safety Report 5386719-7 (Version None)
Quarter: 2007Q3

REPORT INFORMATION
  Report Type: 
  Country: None (occurrence: None)
  Receive Date: 20070713
  Receipt Date: 20070703
  Transmission Date: 20080115
  Serious: Yes (Other)
  Sender: FDA-Public Use
  Company Number: GR-ROCHE-505608

PATIENT
  Sex: Female

DRUGS (1)
  1. BONIVA [Suspect]
     Indication: DRUG USE FOR UNKNOWN INDICATION
     Dosage: FORM: F.C. TABLETS
     Route: 048
     Dates: start: 20070426

REACTIONS (3)
  - CHEST PAIN [None]
  - DRY THROAT [None]
  - DYSPHAGIA [None]
